FAERS Safety Report 9438031 (Version 1)
Quarter: 2013Q3

REPORT INFORMATION
  Report Type: Spontaneous
  Country: US (occurrence: US)
  Receive Date: 20130802
  Receipt Date: 20130802
  Transmission Date: 20140515
  Serious: No
  Sender: FDA-Public Use
  Company Number: US-BRISTOL-MYERS SQUIBB COMPANY-18965202

PATIENT
  Age: 76 Year
  Sex: Female
  Weight: 92.51 kg

DRUGS (5)
  1. COUMADIN [Suspect]
     Indication: ANTICOAGULANT THERAPY
     Dosage: 1 DF: 3.5MG ON WEDNESDAY AND 2.5MG ON OTHER DAYS
  2. OMEPRAZOLE [Concomitant]
  3. HYDROCHLOROTHIAZIDE [Concomitant]
     Dosage: WATER PILL
  4. LOVASTATIN [Concomitant]
     Indication: BLOOD CHOLESTEROL
  5. AMLODIPINE [Concomitant]

REACTIONS (2)
  - International normalised ratio decreased [Unknown]
  - Drug administration error [Unknown]
